FAERS Safety Report 10426490 (Version 5)
Quarter: 2015Q1

REPORT INFORMATION
  Report Type: Spontaneous
  Country: US (occurrence: US)
  Receive Date: 20140903
  Receipt Date: 20150224
  Transmission Date: 20150720
  Serious: Yes (Death, Other)
  Sender: FDA-Public Use
  Company Number: US-PFIZER INC-2014240853

PATIENT
  Age: 66 Year
  Sex: Female

DRUGS (4)
  1. SUTENT [Suspect]
     Active Substance: SUNITINIB MALATE
     Indication: RENAL CELL CARCINOMA
     Dosage: 50 MG, DAILY CYCLIC
     Route: 048
     Dates: start: 20140818
  2. MARINOL [Concomitant]
     Active Substance: DRONABINOL
     Dosage: UNK
  3. MORPHINE [Concomitant]
     Active Substance: MORPHINE
     Dosage: UNK
  4. MECLIZINE [Concomitant]
     Active Substance: MECLIZINE\MECLIZINE HYDROCHLORIDE
     Indication: NAUSEA
     Dosage: UNK

REACTIONS (15)
  - Pyrexia [Unknown]
  - Rash generalised [Unknown]
  - Pain [Unknown]
  - Vomiting [Unknown]
  - Fall [Unknown]
  - Upper limb fracture [Unknown]
  - Blood thyroid stimulating hormone increased [Unknown]
  - Death [Fatal]
  - Dysgeusia [Unknown]
  - Fatigue [Unknown]
  - Renal impairment [Unknown]
  - Weight decreased [Unknown]
  - Nausea [Unknown]
  - White blood cell count decreased [Unknown]
  - Decreased appetite [Unknown]

NARRATIVE: CASE EVENT DATE: 2014
